FAERS Safety Report 8427096-4 (Version None)
Quarter: 2012Q2

REPORT INFORMATION
  Report Type: 
  Country: None (occurrence: None)
  Receive Date: 20120611
  Receipt Date: 20120524
  Transmission Date: 20120825
  Serious: Yes (Hospitalization, Other)
  Sender: FDA-Public Use
  Company Number: VE-PFIZER INC-2012132134

PATIENT
  Age: 74 Year
  Sex: Male

DRUGS (1)
  1. INSPRA [Suspect]
     Dosage: 50 MG, 1X/DAY
     Route: 048
     Dates: start: 20120101, end: 20120524

REACTIONS (3)
  - TRACHEOSTOMY [None]
  - DYSPNOEA [None]
  - LARYNGEAL OEDEMA [None]
